FAERS Safety Report 23223215 (Version 1)
Quarter: 2023Q4

REPORT INFORMATION
  Report Type: Spontaneous
  Country: US (occurrence: US)
  Receive Date: 20231123
  Receipt Date: 20231123
  Transmission Date: 20240110
  Serious: Yes (Hospitalization, Other)
  Sender: FDA-Public Use
  Company Number: US-MLMSERVICE-20230331-4197538-1

PATIENT

DRUGS (5)
  1. HYDROXYCHLOROQUINE [Suspect]
     Active Substance: HYDROXYCHLOROQUINE
     Indication: Lupus nephritis
     Dosage: 200 MG, QD
  2. MYCOPHENOLATE MOFETIL [Suspect]
     Active Substance: MYCOPHENOLATE MOFETIL
     Indication: Lupus nephritis
     Dosage: 360 MG, BID
  3. SIROLIMUS [Suspect]
     Active Substance: SIROLIMUS
     Indication: Lupus nephritis
     Dosage: 1 MG, QD
  4. COUMADIN [Concomitant]
     Active Substance: WARFARIN SODIUM
     Indication: Cerebrovascular accident
     Dosage: 2.5 MG, QD
  5. COUMADIN [Concomitant]
     Active Substance: WARFARIN SODIUM
     Indication: Antiphospholipid syndrome

REACTIONS (14)
  - Gastroenteritis [Recovering/Resolving]
  - Acute kidney injury [Recovering/Resolving]
  - COVID-19 [Recovering/Resolving]
  - Muscular weakness [Recovering/Resolving]
  - Cough [Recovering/Resolving]
  - Bone pain [Recovering/Resolving]
  - Chills [Recovering/Resolving]
  - Pyrexia [Recovering/Resolving]
  - Chest pain [Recovering/Resolving]
  - Dehydration [Recovering/Resolving]
  - Myalgia [Recovering/Resolving]
  - Headache [Recovering/Resolving]
  - Fatigue [Recovering/Resolving]
  - Diarrhoea [Recovering/Resolving]

NARRATIVE: CASE EVENT DATE: 20220101
